FAERS Safety Report 9572282 (Version 1)
Quarter: 2013Q4

REPORT INFORMATION
  Report Type: Spontaneous
  Country: GB (occurrence: GB)
  Receive Date: 20131001
  Receipt Date: 20131001
  Transmission Date: 20140711
  Serious: Yes (Hospitalization, Other)
  Sender: FDA-Public Use
  Company Number: ALCN2013GB004790

PATIENT
  Age: 71 Year
  Sex: Male

DRUGS (8)
  1. AZOPT [Suspect]
     Indication: GLAUCOMA
     Dosage: UNK, BID
     Route: 047
     Dates: start: 20130808, end: 20130826
  2. ASPIRIN [Concomitant]
     Indication: CARDIAC FAILURE
     Dosage: 75 MG, QD
     Route: 048
  3. ACIDO FOLICO [Concomitant]
     Dosage: 5 MG, QD
     Route: 048
  4. LUMIGAN [Concomitant]
     Indication: GLAUCOMA
     Dosage: 1 GTT, QD
     Route: 047
     Dates: start: 201301
  5. RAMIPRIL [Concomitant]
     Indication: CARDIAC FAILURE
     Dosage: 5 MG, QD
     Route: 048
  6. SALBUTAMOL [Concomitant]
     Indication: CHRONIC OBSTRUCTIVE PULMONARY DISEASE
     Dosage: 200 UG, PRN
  7. THIAMINE [Concomitant]
     Indication: ALCOHOLIC
     Dosage: 100 MG, QD
     Route: 048
  8. TIOTROPIUM [Concomitant]
     Indication: CHRONIC OBSTRUCTIVE PULMONARY DISEASE
     Dosage: 18 UG, QD

REACTIONS (1)
  - Epistaxis [Recovering/Resolving]
